FAERS Safety Report 9177270 (Version 1)
Quarter: 2013Q1

REPORT INFORMATION
  Report Type: Spontaneous
  Country: SG (occurrence: SG)
  Receive Date: 20130321
  Receipt Date: 20130321
  Transmission Date: 20140127
  Serious: Yes (Other)
  Sender: FDA-Public Use
  Company Number: SG-BAYER-2013-034769

PATIENT
  Age: 15 Year
  Sex: Female

DRUGS (1)
  1. ACETYLSALICYLIC ACID({=100 MG) [Suspect]
     Dosage: UNK

REACTIONS (4)
  - Angioedema [Unknown]
  - Eye swelling [Unknown]
  - Lip swelling [Unknown]
  - Rash [Unknown]
